FAERS Safety Report 9966971 (Version 2)
Quarter: 2014Q2

REPORT INFORMATION
  Report Type: Spontaneous
  Country: US (occurrence: US)
  Receive Date: 20140305
  Receipt Date: 20140411
  Transmission Date: 20141212
  Serious: No
  Sender: FDA-Public Use
  Company Number: US-009507513-1403USA001460

PATIENT
  Sex: Male

DRUGS (1)
  1. ELOCON [Suspect]
     Route: 061

REACTIONS (2)
  - Burning sensation [Recovered/Resolved]
  - Drug administration error [Unknown]
